FAERS Safety Report 10314009 (Version 2)
Quarter: 2014Q4

REPORT INFORMATION
  Report Type: Spontaneous
  Country: IT (occurrence: IT)
  Receive Date: 20140718
  Receipt Date: 20141030
  Transmission Date: 20150528
  Serious: Yes (Hospitalization)
  Sender: FDA-Public Use
  Company Number: IT-SA-2014SA094926

PATIENT
  Age: 60 Year
  Sex: Male

DRUGS (7)
  1. LASIX [Suspect]
     Active Substance: FUROSEMIDE
     Indication: HYPERTENSIVE HEART DISEASE
     Dosage: DOSE: 1 UNIT DOSE DAILY
     Route: 048
     Dates: start: 20130701, end: 20140712
  2. RANITIDINE [Concomitant]
     Active Substance: RANITIDINE\RANITIDINE HYDROCHLORIDE
  3. LUVION [Suspect]
     Active Substance: CANRENONE
     Indication: HYPERTENSIVE HEART DISEASE
     Dosage: LUVION (CANRENONE) 100 MG HARD CAPSULES, DOSE: 1 UNIT DOSE DAILY
     Route: 048
     Dates: start: 20130701, end: 20140712
  4. RAMIPRIL. [Suspect]
     Active Substance: RAMIPRIL
     Indication: HYPERTENSIVE HEART DISEASE
     Route: 048
     Dates: start: 20130101, end: 20140712
  5. BISOPROLOL HEMIFUMARATE [Concomitant]
     Active Substance: BISOPROLOL FUMARATE
  6. CORDARONE [Concomitant]
     Active Substance: AMIODARONE HYDROCHLORIDE
  7. COUMADIN [Concomitant]
     Active Substance: WARFARIN SODIUM

REACTIONS (2)
  - Hyperkalaemia [Recovered/Resolved]
  - Acute kidney injury [Recovered/Resolved]

NARRATIVE: CASE EVENT DATE: 20140712
